FAERS Safety Report 6635900-5 (Version None)
Quarter: 2010Q1

REPORT INFORMATION
  Report Type: 
  Country: None (occurrence: None)
  Receive Date: 20100316
  Receipt Date: 20100303
  Transmission Date: 20100710
  Serious: Yes (Other)
  Sender: FDA-Public Use
  Company Number: PHHY2010ES07254

PATIENT
  Age: 56 Year
  Sex: Male

DRUGS (2)
  1. ZOMETA [Suspect]
     Dosage: UNK
     Dates: start: 20070320, end: 20091026
  2. PREDNISONE [Concomitant]
     Dosage: 50 MG IN ALTERNATIVE DAYS

REACTIONS (2)
  - DISCOMFORT [None]
  - OSTEONECROSIS [None]
